FAERS Safety Report 17002409 (Version 2)
Quarter: 2021Q1

REPORT INFORMATION
  Report Type: Report from Study
  Country: CA (occurrence: CA)
  Receive Date: 20191107
  Receipt Date: 20210308
  Transmission Date: 20210419
  Serious: Yes (Other)
  Sender: FDA-Public Use
  Company Number: CA-AMGEN-CANNI2019183882

PATIENT
  Age: 48 Year
  Sex: Female

DRUGS (3)
  1. TOPAMAX [Concomitant]
     Active Substance: TOPIRAMATE
     Indication: PRODUCT USED FOR UNKNOWN INDICATION
     Dosage: 50 MILLIGRAM  (IN MORNING)
     Route: 065
  2. AMITRIPTYLINE [Concomitant]
     Active Substance: AMITRIPTYLINE
     Indication: PRODUCT USED FOR UNKNOWN INDICATION
     Dosage: 30 MILLIGRAM  (AT BEDTIME)
     Route: 065
  3. AIMOVIG [Suspect]
     Active Substance: ERENUMAB-AOOE
     Indication: MIGRAINE
     Dosage: 70 MILLIGRAM, QMO
     Route: 065
     Dates: start: 20190129

REACTIONS (12)
  - Headache [Unknown]
  - Presyncope [Unknown]
  - Hemiplegic migraine [Unknown]
  - Syncope [Unknown]
  - Pain in extremity [Unknown]
  - Fall [Unknown]
  - Nausea [Unknown]
  - Hemiplegia [Unknown]
  - Dizziness [Unknown]
  - Discharge [Unknown]
  - Head injury [Unknown]
  - Migraine [Unknown]
